FAERS Safety Report 14061502 (Version 5)
Quarter: 2019Q1

REPORT INFORMATION
  Report Type: Report from Study
  Country: None (occurrence: US)
  Receive Date: 20171009
  Receipt Date: 20190219
  Transmission Date: 20190417
  Serious: Yes (Other)
  Sender: FDA-Public Use
  Company Number: US-ABBVIE-17K-163-2100314-00

PATIENT
  Sex: Female

DRUGS (2)
  1. HUMIRA [Suspect]
     Active Substance: ADALIMUMAB
     Indication: PSORIASIS
     Route: 058
  2. HUMIRA [Suspect]
     Active Substance: ADALIMUMAB
     Indication: PSORIATIC ARTHROPATHY

REACTIONS (19)
  - Fall [Recovering/Resolving]
  - Dry mouth [Unknown]
  - Injection site pain [Unknown]
  - Influenza like illness [Unknown]
  - Depression [Unknown]
  - Fracture delayed union [Recovering/Resolving]
  - Arthralgia [Unknown]
  - Aphthous ulcer [Recovering/Resolving]
  - Neuropathy peripheral [Unknown]
  - Impaired healing [Unknown]
  - Nausea [Unknown]
  - Diabetes mellitus [Not Recovered/Not Resolved]
  - Spinal column stenosis [Unknown]
  - Pelvic fracture [Recovering/Resolving]
  - Oral herpes [Unknown]
  - Feeling abnormal [Unknown]
  - Pelvic fracture [Not Recovered/Not Resolved]
  - Asthenia [Unknown]
  - Tooth extraction [Unknown]

NARRATIVE: CASE EVENT DATE: 2016
